FAERS Safety Report 17595890 (Version 1)
Quarter: 2020Q1

REPORT INFORMATION
  Report Type: Other
  Country: JP (occurrence: JP)
  Receive Date: 20200329
  Receipt Date: 20200329
  Transmission Date: 20200409
  Serious: Yes (Death, Life-Threatening)
  Sender: FDA-Public Use
  Company Number: JP-DEXPHARM-20200276

PATIENT
  Age: 44 Year
  Sex: Male

DRUGS (5)
  1. BORTEZOMIB. [Interacting]
     Active Substance: BORTEZOMIB
  2. DEXAMETHASONE. [Suspect]
     Active Substance: DEXAMETHASONE
  3. CLIOSTAZOL [Concomitant]
     Dosage: DAILY DOSE: 200 MG MILLGRAM(S) EVERY DAYS
  4. ASPIRIN. [Suspect]
     Active Substance: ASPIRIN
     Indication: THROMBOSIS PROPHYLAXIS
  5. THALIDOMIDE [Concomitant]
     Active Substance: THALIDOMIDE
     Indication: THROMBOSIS PROPHYLAXIS

REACTIONS (3)
  - Drug interaction [Unknown]
  - Moyamoya disease [Unknown]
  - Cerebrovascular accident [Unknown]
